FAERS Safety Report 23620641 (Version 1)
Quarter: 2024Q1

REPORT INFORMATION
  Report Type: Spontaneous
  Country: FR (occurrence: FR)
  Receive Date: 20240312
  Receipt Date: 20240312
  Transmission Date: 20240410
  Serious: Yes (Hospitalization)
  Sender: FDA-Public Use
  Company Number: FR-ABBVIE-20K-056-3403842-00

PATIENT
  Age: 27 Year
  Sex: Male
  Weight: 72 kg

DRUGS (8)
  1. ADALIMUMAB [Suspect]
     Active Substance: ADALIMUMAB\ISOPROPYL ALCOHOL
     Dosage: 40 MG, QW
     Route: 058
     Dates: start: 20181113, end: 20190409
  2. ADALIMUMAB [Suspect]
     Active Substance: ADALIMUMAB\ISOPROPYL ALCOHOL
     Dosage: 40 MG, Q2W
     Route: 058
     Dates: start: 20170206, end: 20181113
  3. ADALIMUMAB [Suspect]
     Active Substance: ADALIMUMAB\ISOPROPYL ALCOHOL
     Indication: Colitis ulcerative
     Dosage: 80 MG, UNKNOWN
     Route: 058
     Dates: start: 20170123, end: 20170123
  4. URSODIOL [Concomitant]
     Active Substance: URSODIOL
     Indication: Cholangitis sclerosing
     Dosage: 1000 MG, QD
     Route: 048
     Dates: start: 20180417
  5. DAFALGAN CODEINE [Concomitant]
     Active Substance: ACETAMINOPHEN\CODEINE PHOSPHATE
     Indication: Pain
     Dosage: 1500 MG, QD
     Route: 048
     Dates: start: 20170508, end: 20170706
  6. Fivasa [Concomitant]
     Indication: Prophylaxis
     Dosage: 800 MG
     Route: 048
     Dates: start: 20170711, end: 20170811
  7. Meteospasmyl [Concomitant]
     Indication: Flatulence
     Dosage: 720 MG, QD
     Route: 065
     Dates: start: 20170919, end: 20171019
  8. TRIMEBUTINE [Concomitant]
     Active Substance: TRIMEBUTINE
     Indication: Cytomegalovirus test
     Dosage: 200 MG, UNKNOWN
     Route: 048
     Dates: start: 20180109

REACTIONS (3)
  - Immunodeficiency [Recovered/Resolved]
  - Influenza [Recovered/Resolved]
  - Gastroenteritis [Recovered/Resolved]

NARRATIVE: CASE EVENT DATE: 20190615
